FAERS Safety Report 24722888 (Version 1)
Quarter: 2024Q4

REPORT INFORMATION
  Report Type: Spontaneous
  Country: FR (occurrence: FR)
  Receive Date: 20241211
  Receipt Date: 20241211
  Transmission Date: 20250115
  Serious: Yes (Hospitalization, Other)
  Sender: MYLAN
  Company Number: None

PATIENT
  Age: 62 Year
  Sex: Female
  Weight: 48.5 kg

DRUGS (5)
  1. TRAMADOL [Suspect]
     Active Substance: TRAMADOL
     Indication: Product used for unknown indication
     Dosage: 400 MILLIGRAM, QD
     Route: 048
     Dates: end: 20241003
  2. TRAMADOL [Suspect]
     Active Substance: TRAMADOL
     Dosage: UNK (PATIENT WOULD HAVE TAKEN MEDICATION FOR THE MONTH IN 1 WEEK + 2 BOXES OF TRAMADOL)
     Route: 048
     Dates: start: 20241004, end: 20241011
  3. ALPRAZOLAM [Suspect]
     Active Substance: ALPRAZOLAM
     Indication: Product used for unknown indication
     Dosage: UNK (2 BOXES)
     Route: 048
     Dates: start: 20241004, end: 20241011
  4. AMITRIPTYLINE HYDROCHLORIDE [Suspect]
     Active Substance: AMITRIPTYLINE HYDROCHLORIDE
     Indication: Product used for unknown indication
     Dosage: 25 MILLIGRAM, QD
     Route: 048
     Dates: end: 20241003
  5. AMITRIPTYLINE HYDROCHLORIDE [Suspect]
     Active Substance: AMITRIPTYLINE HYDROCHLORIDE
     Dosage: UNK (PATIENT WOULD HAVE TAKEN HER MONTHLY MEDICATION IN 1 WEEK)
     Route: 048
     Dates: start: 20241004, end: 20241011

REACTIONS (6)
  - Drug use disorder [Recovered/Resolved]
  - Stress cardiomyopathy [Recovering/Resolving]
  - Serotonin syndrome [Recovered/Resolved]
  - Delusional disorder, persecutory type [Recovered/Resolved]
  - Mydriasis [Recovered/Resolved]
  - Language disorder [Recovered/Resolved]

NARRATIVE: CASE EVENT DATE: 20241001
